FAERS Safety Report 6821360-8 (Version None)
Quarter: 2010Q2

REPORT INFORMATION
  Report Type: 
  Country: None (occurrence: None)
  Receive Date: 20100630
  Receipt Date: 20100617
  Transmission Date: 20101027
  Serious: Yes (Other)
  Sender: FDA-Public Use
  Company Number: ACO_00704_2010

PATIENT
  Sex: Female
  Weight: 86.1834 kg

DRUGS (5)
  1. AMPYRA [Suspect]
     Indication: RELAPSING-REMITTING MULTIPLE SCLEROSIS
     Dosage: 10 MG BID ORAL
     Dates: start: 20100329, end: 20100412
  2. COPAXONE [Concomitant]
  3. LISINOPRIL [Concomitant]
  4. ASPIRIN [Concomitant]
  5. LIPITOR [Concomitant]

REACTIONS (3)
  - BLEPHAROSPASM [None]
  - CONVULSION [None]
  - POSTURE ABNORMAL [None]
